FAERS Safety Report 10419728 (Version 1)
Quarter: 2014Q3

REPORT INFORMATION
  Report Type: Spontaneous
  Country: US (occurrence: US)
  Receive Date: 20140829
  Receipt Date: 20140829
  Transmission Date: 20150326
  Serious: Yes (Hospitalization)
  Sender: FDA-Public Use
  Company Number: US-ELI_LILLY_AND_COMPANY-US201408007474

PATIENT
  Sex: Female

DRUGS (1)
  1. SYMBYAX [Suspect]
     Active Substance: FLUOXETINE HYDROCHLORIDE\OLANZAPINE
     Indication: PRODUCT USED FOR UNKNOWN INDICATION
     Dosage: UNK UNK, QD
     Route: 065
     Dates: end: 201407

REACTIONS (7)
  - Pulmonary embolism [Unknown]
  - Insomnia [Recovered/Resolved]
  - Pruritus [Unknown]
  - Drug withdrawal syndrome [Recovering/Resolving]
  - Alcohol abuse [Unknown]
  - Thrombosis [Unknown]
  - Sedation [Unknown]

NARRATIVE: CASE EVENT DATE: 2014
